FAERS Safety Report 7462724-1 (Version None)
Quarter: 2011Q2

REPORT INFORMATION
  Report Type: 
  Country: None (occurrence: None)
  Receive Date: 20110506
  Receipt Date: 20110429
  Transmission Date: 20111010
  Serious: Yes (Life-Threatening, Hospitalization)
  Sender: FDA-Public Use
  Company Number: US-CELGENEUS-163-21880-11050061

PATIENT
  Sex: Female

DRUGS (4)
  1. PRAVACHOL [Concomitant]
     Route: 065
  2. SYNTHROID [Concomitant]
     Route: 065
  3. ZEGERID [Concomitant]
     Route: 065
  4. REVLIMID [Suspect]
     Dosage: 10 MILLIGRAM
     Route: 048
     Dates: start: 20110203

REACTIONS (1)
  - THROMBOSIS [None]
